FAERS Safety Report 20652899 (Version 1)
Quarter: 2022Q1

REPORT INFORMATION
  Report Type: Spontaneous
  Country: US (occurrence: US)
  Receive Date: 20220330
  Receipt Date: 20220330
  Transmission Date: 20220423
  Serious: Yes (Life-Threatening)
  Sender: FDA-Public Use
  Company Number: US-VALIDUS PHARMACEUTICALS LLC-US-VDP-2022-015226

PATIENT

DRUGS (3)
  1. BUMEX [Suspect]
     Active Substance: BUMETANIDE
     Indication: Fluid retention
     Route: 048
  2. BUMEX [Suspect]
     Active Substance: BUMETANIDE
     Indication: Cardiac disorder
  3. LASIX [Suspect]
     Active Substance: FUROSEMIDE
     Indication: Product used for unknown indication
     Route: 065

REACTIONS (2)
  - Blood pressure decreased [Unknown]
  - Ill-defined disorder [Unknown]
